FAERS Safety Report 26212037 (Version 1)
Quarter: 2025Q4

REPORT INFORMATION
  Report Type: Spontaneous
  Country: US (occurrence: US)
  Receive Date: 20251230
  Receipt Date: 20251230
  Transmission Date: 20260118
  Serious: Yes (Hospitalization)
  Sender: TEVA
  Company Number: US-TEVA-VS-3406826

PATIENT
  Age: 4 Year
  Sex: Female

DRUGS (3)
  1. METHOTREXATE [Suspect]
     Active Substance: METHOTREXATE
     Indication: Acute lymphocytic leukaemia
     Dosage: DELAYED INTENSIFICATION THERAPY
     Route: 065
  2. CEFDINIR [Suspect]
     Active Substance: CEFDINIR
     Indication: Product used for unknown indication
     Route: 065
  3. VINCRISTINE [Suspect]
     Active Substance: VINCRISTINE
     Indication: Acute lymphocytic leukaemia
     Dosage: DELAYED INTENSIFICATION THERAPY
     Route: 065

REACTIONS (2)
  - Neutropenia [Recovering/Resolving]
  - Drug hypersensitivity [Unknown]
